FAERS Safety Report 16206096 (Version 1)
Quarter: 2019Q2

REPORT INFORMATION
  Report Type: Spontaneous
  Country: RU (occurrence: RU)
  Receive Date: 20190417
  Receipt Date: 20190417
  Transmission Date: 20190711
  Serious: Yes (Other)
  Sender: FDA-Public Use
  Company Number: RU-ASTRAZENECA-2019SE57515

PATIENT
  Sex: Female

DRUGS (1)
  1. DURVALUMAB. [Suspect]
     Active Substance: DURVALUMAB
     Dosage: 500 MG
     Route: 042
     Dates: start: 20181224, end: 20190304

REACTIONS (1)
  - Disease progression [Unknown]
